FAERS Safety Report 6062908-3 (Version None)
Quarter: 2009Q1

REPORT INFORMATION
  Report Type: 
  Country: None (occurrence: None)
  Receive Date: 20090203
  Receipt Date: 20090123
  Transmission Date: 20090719
  Serious: Yes (Disabling, Other)
  Sender: FDA-Public Use
  Company Number: CA-JNJFOC-20080804049

PATIENT
  Sex: Female
  Weight: 65.77 kg

DRUGS (2)
  1. REMICADE [Suspect]
     Indication: CROHN'S DISEASE
     Route: 042
  2. SYMBICORT [Concomitant]
     Indication: ASTHMA

REACTIONS (8)
  - ABASIA [None]
  - ARTHRALGIA [None]
  - ECCHYMOSIS [None]
  - HAEMATOMA [None]
  - OEDEMA PERIPHERAL [None]
  - PARAESTHESIA [None]
  - RECTAL HAEMORRHAGE [None]
  - SYSTEMIC LUPUS ERYTHEMATOSUS [None]
